FAERS Safety Report 17659303 (Version 1)
Quarter: 2020Q2

REPORT INFORMATION
  Report Type: Spontaneous
  Country: US (occurrence: US)
  Receive Date: 20200413
  Receipt Date: 20200413
  Transmission Date: 20200713
  Serious: No
  Sender: FDA-Public Use
  Company Number: US-BION-008280

PATIENT
  Age: 58 Year
  Sex: Female
  Weight: 79 kg

DRUGS (1)
  1. ALEVE [Suspect]
     Active Substance: NAPROXEN SODIUM
     Indication: PAIN
     Dosage: 2 DAILY
     Route: 048

REACTIONS (3)
  - Incorrect product administration duration [Not Recovered/Not Resolved]
  - Product odour abnormal [Unknown]
  - Product prescribing error [Not Recovered/Not Resolved]
